FAERS Safety Report 7805298-5 (Version None)
Quarter: 2011Q4

REPORT INFORMATION
  Report Type: 
  Country: None (occurrence: None)
  Receive Date: 20111010
  Receipt Date: 20111005
  Transmission Date: 20120403
  Serious: Yes (Death, Hospitalization)
  Sender: FDA-Public Use
  Company Number: VE-PFIZER INC-2011226787

PATIENT
  Age: 88 Year
  Sex: Female

DRUGS (1)
  1. LIPITOR [Suspect]
     Indication: HYPERCHOLESTEROLAEMIA
     Dosage: 40 MG, 1X/DAY
     Route: 048
     Dates: start: 20080101

REACTIONS (3)
  - ASPHYXIA [None]
  - RESPIRATORY FAILURE [None]
  - HYPOXIA [None]
